FAERS Safety Report 14915735 (Version 13)
Quarter: 2019Q1

REPORT INFORMATION
  Report Type: Report from Study
  Country: US (occurrence: US)
  Receive Date: 20180518
  Receipt Date: 20190319
  Transmission Date: 20190417
  Serious: Yes (Hospitalization, Other)
  Sender: FDA-Public Use
  Company Number: US-ACTELION-A-US2016-142165

PATIENT
  Age: 69 Year
  Sex: Female
  Weight: 71.2 kg

DRUGS (35)
  1. AMLODIPINE [Concomitant]
     Active Substance: AMLODIPINE BESYLATE
  2. ONDANSETRON [Concomitant]
     Active Substance: ONDANSETRON
     Dosage: UNK
     Dates: start: 20170711
  3. ATORVASTATIN [Concomitant]
     Active Substance: ATORVASTATIN
     Dosage: UNK
     Dates: start: 20170711
  4. DEXTROSE. [Concomitant]
     Active Substance: DEXTROSE
     Dosage: UNK
     Dates: start: 20170711
  5. GLUCOSE [Concomitant]
     Active Substance: DEXTROSE
     Dosage: UNK
     Dates: start: 20170711
  6. LOVAZA [Concomitant]
     Active Substance: OMEGA-3-ACID ETHYL ESTERS
  7. TRAMADOL. [Concomitant]
     Active Substance: TRAMADOL
     Dosage: UNK
     Dates: start: 20170711
  8. XOPENEX HFA [Concomitant]
     Active Substance: LEVALBUTEROL TARTRATE
     Dosage: UNK
     Dates: start: 20170711
  9. ACETAMINOPHEN. [Concomitant]
     Active Substance: ACETAMINOPHEN
     Dosage: UNK
     Dates: start: 20170711
  10. AMITRIPTYLINE [Concomitant]
     Active Substance: AMITRIPTYLINE
     Dosage: UNK
     Dates: start: 20170711
  11. PANTOPRAZOLE [Concomitant]
     Active Substance: PANTOPRAZOLE
     Dosage: UNK
     Dates: start: 20170711
  12. PROTONIX [Concomitant]
     Active Substance: PANTOPRAZOLE SODIUM
     Dosage: UNK
     Dates: start: 20180711
  13. CETIRIZINE [Concomitant]
     Active Substance: CETIRIZINE HYDROCHLORIDE
  14. DIGOXIN. [Concomitant]
     Active Substance: DIGOXIN
     Dosage: UNK
     Dates: start: 20170711
  15. INSULIN LISPRO [Concomitant]
     Active Substance: INSULIN LISPRO
     Dosage: UNK
     Dates: start: 20170711
  16. OXYGEN. [Concomitant]
     Active Substance: OXYGEN
     Dosage: UNK
     Dates: start: 20170711
  17. OPSUMIT [Suspect]
     Active Substance: MACITENTAN
     Indication: PULMONARY HYPERTENSION
     Dosage: 10 MG, QD
     Route: 048
     Dates: end: 201902
  18. XARELTO [Suspect]
     Active Substance: RIVAROXABAN
     Indication: PRODUCT USED FOR UNKNOWN INDICATION
     Route: 065
  19. ASPIRIN. [Concomitant]
     Active Substance: ASPIRIN
     Dosage: UNK
     Dates: start: 20170711
  20. ENOXAPARIN [Concomitant]
     Active Substance: ENOXAPARIN
     Dosage: UNK
     Dates: start: 20170711
  21. VITAMIN B [Concomitant]
     Active Substance: VITAMIN B
     Dosage: UNK
     Dates: start: 20170711
  22. ADCIRCA [Concomitant]
     Active Substance: TADALAFIL
  23. MAGNESIUM OXIDE. [Concomitant]
     Active Substance: MAGNESIUM OXIDE
     Dosage: UNK
     Dates: start: 20170711
  24. OMEGA 3 [Concomitant]
     Active Substance: OMEGA-3 FATTY ACIDS
     Dosage: UNK
     Dates: start: 20170711
  25. TADALAFIL. [Concomitant]
     Active Substance: TADALAFIL
     Dosage: UNK
     Dates: start: 20170711
  26. OPSUMIT [Suspect]
     Active Substance: MACITENTAN
     Dosage: 10 MG, QD
     Route: 048
     Dates: start: 20160419, end: 20180616
  27. ORENITRAM [Suspect]
     Active Substance: TREPROSTINIL
     Indication: PULMONARY ARTERIAL HYPERTENSION
     Dosage: 0.75 MG, TID
     Route: 048
     Dates: start: 20170928
  28. CALCIUM + VITAMIN D [Concomitant]
     Active Substance: CALCIUM\VITAMIN D
     Dosage: UNK
     Dates: start: 20170711
  29. CHOLECALCIFEROL [Concomitant]
     Active Substance: CHOLECALCIFEROL
     Dosage: UNK
     Dates: start: 20170711
  30. LEVOTHYROXINE. [Concomitant]
     Active Substance: LEVOTHYROXINE
     Dosage: UNK
     Dates: start: 20170711
  31. LANTUS [Concomitant]
     Active Substance: INSULIN GLARGINE
     Dosage: UNK
     Dates: start: 20170711
  32. ULTRAM [Concomitant]
     Active Substance: TRAMADOL HYDROCHLORIDE
     Dosage: UNK
     Dates: start: 20170711
  33. ATENOLOL. [Concomitant]
     Active Substance: ATENOLOL
     Dosage: UNK
     Dates: start: 20170711
  34. METFORMIN [Concomitant]
     Active Substance: METFORMIN HYDROCHLORIDE
     Dosage: UNK
     Dates: start: 20170711
  35. SIMVASTATIN. [Concomitant]
     Active Substance: SIMVASTATIN
     Dosage: UNK
     Dates: start: 20170711

REACTIONS (19)
  - Hospitalisation [Unknown]
  - Fluid overload [Unknown]
  - Haemorrhage [Recovered/Resolved]
  - Haemoglobin decreased [Recovered/Resolved]
  - Headache [Unknown]
  - Transfusion [Unknown]
  - Haematocrit decreased [Recovered/Resolved]
  - Dyspnoea [Recovered/Resolved]
  - Gastrointestinal haemorrhage [Unknown]
  - Aspartate aminotransferase decreased [Unknown]
  - Dizziness [Recovered/Resolved]
  - Chest pain [Recovered/Resolved]
  - Pruritus generalised [Unknown]
  - Asthenia [Recovered/Resolved]
  - Anaemia [Recovered/Resolved]
  - Hypoglycaemia [Unknown]
  - Atrial fibrillation [Unknown]
  - Weight increased [Unknown]
  - Dizziness postural [Recovered/Resolved]

NARRATIVE: CASE EVENT DATE: 20160726
